FAERS Safety Report 18735635 (Version 4)
Quarter: 2021Q1

REPORT INFORMATION
  Report Type: Report from Study
  Country: US (occurrence: US)
  Receive Date: 20210113
  Receipt Date: 20210329
  Transmission Date: 20210419
  Serious: Yes (Death, Life-Threatening, Hospitalization, Other)
  Sender: FDA-Public Use
  Company Number: NVSC2021US004327

PATIENT
  Age: 47 Year
  Sex: Male

DRUGS (2)
  1. ENTRESTO [Suspect]
     Active Substance: SACUBITRIL\VALSARTAN
     Indication: CARDIAC FAILURE
     Dosage: 200 MG, BID (100MG?49/51MG IN AM, 200MG?97/103MG IN PM)
     Route: 048
     Dates: start: 201901
  2. ENTRESTO [Suspect]
     Active Substance: SACUBITRIL\VALSARTAN
     Dosage: 50 MG, BID (24/26MG)
     Route: 048

REACTIONS (7)
  - Product dose omission issue [Unknown]
  - Lung disorder [Unknown]
  - Pain [Recovered/Resolved]
  - Cough [Unknown]
  - Cardiac disorder [Fatal]
  - Hypotension [Unknown]
  - Dyspnoea [Unknown]

NARRATIVE: CASE EVENT DATE: 202012
